FAERS Safety Report 9787846 (Version 1)
Quarter: 2013Q4

REPORT INFORMATION
  Report Type: Spontaneous
  Country: US (occurrence: US)
  Receive Date: 20131230
  Receipt Date: 20131230
  Transmission Date: 20140711
  Serious: No
  Sender: FDA-Public Use
  Company Number: US-PFIZER INC-2013372137

PATIENT
  Age: 59 Year
  Sex: Female
  Weight: 54.42 kg

DRUGS (7)
  1. NEURONTIN [Suspect]
     Indication: NEURALGIA
     Dosage: UNK
  2. PERCOCET [Suspect]
     Indication: PAIN
     Dosage: (10 MG OF OXYCODONE HYDROCHLORIDE/325 MG OF PARACETAMOL), 1X/DAY
  3. FLEXERIL [Concomitant]
     Dosage: 10 MG, 3X/DAY
  4. ATIVAN [Concomitant]
     Dosage: 1 MG, 3X/DAY
  5. OMEPRAZOLE [Concomitant]
     Indication: GASTROOESOPHAGEAL REFLUX DISEASE
     Dosage: 40 MG, 1X/DAY
  6. CELEXA [Concomitant]
     Indication: DEPRESSION
     Dosage: 40 MG, 1X/DAY
  7. TUDORZA PRESSAIR [Concomitant]
     Indication: CHRONIC OBSTRUCTIVE PULMONARY DISEASE
     Dosage: 400 MG, 2X/DAY

REACTIONS (1)
  - Drug ineffective [Unknown]
